FAERS Safety Report 13489164 (Version 1)
Quarter: 2017Q2

REPORT INFORMATION
  Report Type: Spontaneous
  Country: US (occurrence: US)
  Receive Date: 20170427
  Receipt Date: 20170427
  Transmission Date: 20170830
  Serious: No
  Sender: FDA-Public Use
  Company Number: US-DRREDDYS-USA/USA/16/0083513

PATIENT
  Sex: Female
  Weight: 72.57 kg

DRUGS (1)
  1. ZIPRASIDONE. [Suspect]
     Active Substance: ZIPRASIDONE
     Indication: ANXIETY
     Route: 048

REACTIONS (3)
  - Anxiety [Not Recovered/Not Resolved]
  - Product quality issue [Unknown]
  - Wrong technique in product usage process [Unknown]
